FAERS Safety Report 15556722 (Version 2)
Quarter: 2019Q3

REPORT INFORMATION
  Report Type: Spontaneous
  Country: NL (occurrence: NL)
  Receive Date: 20181026
  Receipt Date: 20190808
  Transmission Date: 20191004
  Serious: Yes (Other)
  Sender: FDA-Public Use
  Company Number: NL-AMGEN-NLDSP2018150403

PATIENT
  Age: 77 Year
  Sex: Male

DRUGS (1)
  1. TALIMOGENE LAHERPAREPVEC [Suspect]
     Active Substance: TALIMOGENE LAHERPAREPVEC
     Indication: METASTATIC MALIGNANT MELANOMA
     Dosage: UNK UNK, CYCLICAL
     Route: 065

REACTIONS (1)
  - Colitis [Unknown]
